FAERS Safety Report 11837409 (Version 3)
Quarter: 2019Q2

REPORT INFORMATION
  Report Type: Spontaneous
  Country: US (occurrence: US)
  Receive Date: 20151215
  Receipt Date: 20190628
  Transmission Date: 20190711
  Serious: Yes (Death, Hospitalization, Other)
  Sender: FDA-Public Use
  Company Number: US-009507513-1512USA008030

PATIENT
  Sex: Female
  Weight: 99.77 kg

DRUGS (7)
  1. OXALIPLATIN. [Suspect]
     Active Substance: OXALIPLATIN
     Indication: METASTASES TO LIVER
     Dosage: UNK
     Dates: start: 20121018
  2. GEMCITABINE [Suspect]
     Active Substance: GEMCITABINE\GEMCITABINE HYDROCHLORIDE
     Indication: PANCREATIC CARCINOMA METASTATIC
     Dosage: UNK
     Dates: start: 20121003
  3. GEMCITABINE [Suspect]
     Active Substance: GEMCITABINE\GEMCITABINE HYDROCHLORIDE
     Indication: METASTASES TO LUNG
  4. OXALIPLATIN. [Suspect]
     Active Substance: OXALIPLATIN
     Indication: METASTASES TO LUNG
  5. OXALIPLATIN. [Suspect]
     Active Substance: OXALIPLATIN
     Indication: PANCREATIC CARCINOMA METASTATIC
     Dosage: UNK
     Dates: start: 20121004
  6. JANUVIA [Suspect]
     Active Substance: SITAGLIPTIN PHOSPHATE
     Indication: TYPE 2 DIABETES MELLITUS
     Dosage: 100 MILLIGRAM, QD
     Route: 048
     Dates: start: 20100818, end: 201204
  7. GEMCITABINE [Suspect]
     Active Substance: GEMCITABINE\GEMCITABINE HYDROCHLORIDE
     Indication: METASTASES TO LIVER
     Dosage: UNK
     Dates: start: 20121017

REACTIONS (20)
  - Metastases to lung [Fatal]
  - Metabolic acidosis [Recovered/Resolved]
  - Nausea [Unknown]
  - Ascites [Unknown]
  - Hepatic encephalopathy [Unknown]
  - Acute kidney injury [Not Recovered/Not Resolved]
  - Pyrexia [Unknown]
  - Bacterial sepsis [Unknown]
  - Dehydration [Unknown]
  - Depression [Unknown]
  - Gastric ulcer [Recovering/Resolving]
  - Metastases to liver [Fatal]
  - Device related sepsis [Unknown]
  - Gastrooesophageal reflux disease [Recovering/Resolving]
  - Dyspepsia [Recovering/Resolving]
  - Pancreatic carcinoma metastatic [Fatal]
  - Hyperpyrexia [Unknown]
  - Abdominal tenderness [Unknown]
  - Mental status changes [Recovering/Resolving]
  - Vascular device user [Unknown]

NARRATIVE: CASE EVENT DATE: 2012
